FAERS Safety Report 11480707 (Version 2)
Quarter: 2015Q4

REPORT INFORMATION
  Report Type: Spontaneous
  Country: JP (occurrence: JP)
  Receive Date: 20150909
  Receipt Date: 20151009
  Transmission Date: 20160304
  Serious: Yes (Other)
  Sender: FDA-Public Use
  Company Number: JP-REGENERON PHARMACEUTICALS, INC.-2015-12216

PATIENT

DRUGS (6)
  1. SANCOBA [Concomitant]
     Active Substance: CYANOCOBALAMIN
     Indication: ASTHENOPIA
     Dosage: UNK
     Route: 047
     Dates: start: 20120914
  2. GATIFLO [Concomitant]
     Active Substance: GATIFLOXACIN
     Dosage: UNK UNK, 6ID
     Dates: start: 20150822
  3. TEARBALANCE [Concomitant]
     Active Substance: HYALURONATE SODIUM
     Indication: DRY EYE
     Dosage: UNK
     Route: 047
     Dates: start: 20121222
  4. GATIFLO [Concomitant]
     Active Substance: GATIFLOXACIN
     Indication: PROPHYLAXIS
     Dosage: UNK
     Route: 047
     Dates: start: 20150818, end: 20150829
  5. EYLEA [Suspect]
     Active Substance: AFLIBERCEPT
     Indication: AGE-RELATED MACULAR DEGENERATION
     Dosage: 2 MG MILLIGRAM(S), ONCE
     Route: 031
     Dates: start: 20150421, end: 20150421
  6. EYLEA [Suspect]
     Active Substance: AFLIBERCEPT
     Dosage: 2 MG / 0,05ML , ONCE LEFT EYE
     Route: 031
     Dates: start: 20150821, end: 20150821

REACTIONS (2)
  - Iritis [Recovered/Resolved]
  - Hypotony of eye [Recovered/Resolved]

NARRATIVE: CASE EVENT DATE: 20150822
